FAERS Safety Report 8267346-0 (Version None)
Quarter: 2012Q2

REPORT INFORMATION
  Report Type: 
  Country: None (occurrence: None)
  Receive Date: 20120409
  Receipt Date: 20120326
  Transmission Date: 20120825
  Serious: Yes (Other)
  Sender: FDA-Public Use
  Company Number: PHHY2012JP027456

PATIENT
  Sex: Male

DRUGS (3)
  1. SIMULECT [Suspect]
     Indication: RENAL AND PANCREAS TRANSPLANT
     Dates: start: 20101201, end: 20101201
  2. MYCOPHENOLATE MOFETIL (CELLCEPT) [Concomitant]
     Indication: RENAL TRANSPLANT
     Dates: start: 20101201
  3. TACROLIMUS [Concomitant]
     Indication: RENAL TRANSPLANT
     Dates: start: 20101201

REACTIONS (5)
  - COLITIS ISCHAEMIC [None]
  - CYTOMEGALOVIRUS INFECTION [None]
  - PNEUMONIA [None]
  - BLOOD CREATININE INCREASED [None]
  - ABDOMINAL ABSCESS [None]
